FAERS Safety Report 8450664-0 (Version None)
Quarter: 2012Q2

REPORT INFORMATION
  Report Type: 
  Country: None (occurrence: None)
  Receive Date: 20120620
  Receipt Date: 20120619
  Transmission Date: 20120825
  Serious: Yes (Other)
  Sender: FDA-Public Use
  Company Number: US-PFIZER INC-2012044883

PATIENT
  Sex: Female
  Weight: 54.422 kg

DRUGS (3)
  1. LEVOXYL [Suspect]
     Indication: AUTOIMMUNE THYROIDITIS
     Dosage: 100 UG, 1X/DAY
     Route: 048
     Dates: end: 20120201
  2. LEVOXYL [Suspect]
     Dosage: 100 UG, 1X/DAY
     Route: 048
     Dates: start: 20120217
  3. LEVOXYL [Suspect]
     Dosage: 0.05 MG, 1X/DAY
     Route: 048
     Dates: start: 20120604

REACTIONS (12)
  - MUSCLE RIGIDITY [None]
  - MOVEMENT DISORDER [None]
  - INSOMNIA [None]
  - MOTOR DYSFUNCTION [None]
  - HYPOKINESIA [None]
  - MUSCLE SPASMS [None]
  - ARTHRALGIA [None]
  - GAIT DISTURBANCE [None]
  - COORDINATION ABNORMAL [None]
  - HYPOAESTHESIA [None]
  - DYSGRAPHIA [None]
  - ACTIVITIES OF DAILY LIVING IMPAIRED [None]
